FAERS Safety Report 19278489 (Version 1)
Quarter: 2021Q2

REPORT INFORMATION
  Report Type: Spontaneous
  Country: US (occurrence: US)
  Receive Date: 20210520
  Receipt Date: 20210520
  Transmission Date: 20210717
  Serious: Yes (Death, Life-Threatening, Hospitalization)
  Sender: FDA-Public Use
  Company Number: US-HIKMA PHARMACEUTICALS USA INC.-US-H14001-21-02300

PATIENT
  Age: 32 Year
  Sex: Male

DRUGS (1)
  1. COLCHICINE. [Suspect]
     Active Substance: COLCHICINE
     Indication: PRODUCT USED FOR UNKNOWN INDICATION
     Dosage: BETWEEN 32.4MG (0.39MG/KG) AND 54MG (0.65MG/KG)
     Route: 048

REACTIONS (17)
  - Multiple organ dysfunction syndrome [Unknown]
  - Neutropenia [Unknown]
  - Circulatory collapse [Unknown]
  - Troponin increased [Unknown]
  - Hyperphosphataemia [Unknown]
  - Acute hepatic failure [Recovered/Resolved]
  - Lactic acidosis [Unknown]
  - Hyperkalaemia [Unknown]
  - Hypomagnesaemia [Unknown]
  - Intentional overdose [Fatal]
  - Toxicity to various agents [Unknown]
  - Pancytopenia [Unknown]
  - Disseminated intravascular coagulation [Unknown]
  - Acute kidney injury [Unknown]
  - Rhabdomyolysis [Unknown]
  - Hypocalcaemia [Unknown]
  - Hypoglycaemia [Unknown]
